FAERS Safety Report 12852264 (Version 1)
Quarter: 2016Q4

REPORT INFORMATION
  Report Type: Not Available
  Country: None (occurrence: US)
  Receive Date: 20161017
  Receipt Date: 20161017
  Transmission Date: 20170207
  Serious: No
  Sender: FDA-Public Use
  Company Number: US-AKORN-35565

PATIENT
  Age: 14 Year
  Sex: Female

DRUGS (1)
  1. LORAZEPAM ORAL CONCENTRATE, USP [Suspect]
     Active Substance: LORAZEPAM

REACTIONS (2)
  - Restlessness [None]
  - Drug ineffective [None]
